FAERS Safety Report 6028132-5 (Version None)
Quarter: 2009Q1

REPORT INFORMATION
  Report Type: 
  Country: None (occurrence: None)
  Receive Date: 20090105
  Receipt Date: 20090105
  Transmission Date: 20090719
  Serious: Yes (Life-Threatening)
  Sender: FDA-Public Use
  Company Number: None

PATIENT
  Age: 76 Year
  Sex: Female

DRUGS (1)
  1. LORAZEPAM [Suspect]
     Indication: AGITATION
     Dosage: 1 G IM Q4H
     Route: 030
     Dates: start: 20081126

REACTIONS (1)
  - GRAND MAL CONVULSION [None]
